FAERS Safety Report 5267798-4 (Version None)
Quarter: 2007Q1

REPORT INFORMATION
  Report Type: 
  Country: None (occurrence: None)
  Receive Date: 20070316
  Receipt Date: 20070306
  Transmission Date: 20070707
  Serious: Yes (Other)
  Sender: FDA-Public Use
  Company Number: GB-PFIZER INC-2007018180

PATIENT
  Age: 36 Year
  Sex: Female

DRUGS (3)
  1. LYRICA [Suspect]
     Indication: NECK PAIN
     Route: 048
  2. LYRICA [Suspect]
     Indication: FACIAL PAIN
  3. CORTICOSTEROIDS [Concomitant]

REACTIONS (5)
  - ARTHRALGIA [None]
  - DRUG INEFFECTIVE [None]
  - NECK MASS [None]
  - PARAESTHESIA [None]
  - VIRAL INFECTION [None]
